FAERS Safety Report 19005671 (Version 1)
Quarter: 2021Q1

REPORT INFORMATION
  Report Type: Spontaneous
  Country: GB (occurrence: GB)
  Receive Date: 20210313
  Receipt Date: 20210313
  Transmission Date: 20210420
  Serious: Yes (Other)
  Sender: FDA-Public Use
  Company Number: GB-JNJFOC-20191214759

PATIENT
  Age: 83 Year
  Sex: Female

DRUGS (16)
  1. LANZOPRAZOL [Concomitant]
     Active Substance: LANSOPRAZOLE
     Dosage: MORNING
     Route: 065
     Dates: start: 20190621
  2. SERTRALINE [Concomitant]
     Active Substance: SERTRALINE HYDROCHLORIDE
     Route: 065
  3. PARACETAMOL [Concomitant]
     Active Substance: ACETAMINOPHEN
     Dosage: TWO TO BE TAKEN EVERY 4?6 HOURS UP TO FOUR TIMES A DAY.
     Route: 065
     Dates: start: 20190621
  4. MEDROXYPROGESTERONE [Concomitant]
     Active Substance: MEDROXYPROGESTERONE
     Route: 065
     Dates: start: 20190612
  5. ATORVASTATIN [Concomitant]
     Active Substance: ATORVASTATIN
     Route: 065
  6. IBUPROFEN. [Concomitant]
     Active Substance: IBUPROFEN
     Dosage: AFTER FOOD.
     Route: 065
     Dates: start: 20190621
  7. CODEINE [Concomitant]
     Active Substance: CODEINE
     Dosage: AT NIGHT
     Dates: start: 20190621
  8. CLOPIDOGREL [Concomitant]
     Active Substance: CLOPIDOGREL BISULFATE
  9. MACROGOLA [Concomitant]
     Route: 048
  10. GINGER                             /01646602/ [Concomitant]
     Indication: PRODUCT USED FOR UNKNOWN INDICATION
     Route: 065
  11. AMLODIPINE [Concomitant]
     Active Substance: AMLODIPINE BESYLATE
     Route: 065
  12. SODIUM DIHYDROGEN PHOSPHATE [Concomitant]
     Active Substance: SODIUM PHOSPHATE
     Dosage: 128ML STANDARD TUBE AS DIRECTED.
     Route: 065
     Dates: start: 20190701
  13. FORTISIP [Concomitant]
     Active Substance: CARBOHYDRATES\FATTY ACIDS\MINERALS\PROTEIN\VITAMINS
     Dosage: 250 X 28 ML.
     Route: 065
  14. LAXIDO [Concomitant]
     Active Substance: POLYETHYLENE GLYCOL 3350\POTASSIUM CHLORIDE\SODIUM BICARBONATE\SODIUM CHLORIDE
     Dosage: 1?2 PER DAY.
     Route: 048
     Dates: start: 20190701
  15. IMODIUM [Suspect]
     Active Substance: LOPERAMIDE HYDROCHLORIDE
     Indication: PRODUCT USED FOR UNKNOWN INDICATION
     Route: 065
     Dates: start: 20190701
  16. CASSIA [Concomitant]
     Dosage: ONE OR TWO TO BE TAKEN AT NIGHT.
     Route: 065
     Dates: start: 20190703

REACTIONS (1)
  - Small intestinal obstruction [Unknown]
